FAERS Safety Report 20041422 (Version 1)
Quarter: 2021Q4

REPORT INFORMATION
  Report Type: Spontaneous
  Country: US (occurrence: US)
  Receive Date: 20211108
  Receipt Date: 20211108
  Transmission Date: 20220303
  Serious: No
  Sender: FDA-Public Use
  Company Number: US-drreddys-SPO/USA/21/0143368

PATIENT
  Age: 20 Year
  Sex: Male

DRUGS (2)
  1. ZENATANE [Suspect]
     Active Substance: ISOTRETINOIN
     Indication: Product used for unknown indication
     Dosage: RMA ISSUE DATE:21 JUNE 2021 12:00:00 AM,26 AUGUST 2021 12:00:00 AM
  2. ZENATANE [Suspect]
     Active Substance: ISOTRETINOIN
     Dosage: RMA ISSUE DATE:30 SEPTEMBER 2021 12:00:00 AM

REACTIONS (3)
  - Abdominal discomfort [Unknown]
  - Allergic reaction to excipient [Unknown]
  - Vomiting [Unknown]
